FAERS Safety Report 7234177-X (Version None)
Quarter: 2011Q1

REPORT INFORMATION
  Report Type: 
  Country: None (occurrence: None)
  Receive Date: 20110119
  Receipt Date: 20110114
  Transmission Date: 20110831
  Serious: Yes (Hospitalization, Other)
  Sender: FDA-Public Use
  Company Number: SE-ABBOTT-10P-150-0686319-00

PATIENT
  Sex: Male

DRUGS (15)
  1. TRADOLAN [Concomitant]
     Indication: ANALGESIC THERAPY
  2. TROMBYL [Concomitant]
     Indication: PRODUCT USED FOR UNKNOWN INDICATION
  3. ALVEDON [Concomitant]
     Indication: ANALGESIC THERAPY
     Dosage: 2 TABLETS 4 TIMES PER DAY
  4. REMICADE [Suspect]
     Indication: ANKYLOSING SPONDYLITIS
     Route: 042
     Dates: start: 20001228, end: 20070905
  5. OMEPRAZOLE [Concomitant]
     Indication: PRODUCT USED FOR UNKNOWN INDICATION
  6. SIMVASTATIN [Concomitant]
     Indication: PRODUCT USED FOR UNKNOWN INDICATION
  7. CLOPIDOGREL [Concomitant]
     Indication: MYOCARDIAL INFARCTION
  8. FOLACIN [Concomitant]
     Indication: PRODUCT USED FOR UNKNOWN INDICATION
     Dosage: 2 TABLETS TWICE WEEKLY
  9. ALLOPURINOL [Concomitant]
     Indication: PRODUCT USED FOR UNKNOWN INDICATION
  10. FELODIPINE [Concomitant]
     Indication: PRODUCT USED FOR UNKNOWN INDICATION
  11. HUMIRA [Suspect]
     Indication: ANKYLOSING SPONDYLITIS
     Dates: start: 20070905, end: 20100901
  12. METOPROLOL [Concomitant]
     Indication: PRODUCT USED FOR UNKNOWN INDICATION
  13. ZOLPIDEM [Concomitant]
     Indication: INSOMNIA
  14. METOTREXATE [Concomitant]
     Indication: ANKYLOSING SPONDYLITIS
  15. COZAAR [Concomitant]
     Indication: PRODUCT USED FOR UNKNOWN INDICATION
     Dosage: 100/25 MILLIGRAM: 1 IN 1 DAY

REACTIONS (5)
  - CHRONIC LYMPHOCYTIC LEUKAEMIA [None]
  - MYOCARDIAL INFARCTION [None]
  - TONSILLITIS [None]
  - LEUKOCYTOSIS [None]
  - RHEUMATOID ARTHRITIS [None]
